FAERS Safety Report 23137238 (Version 1)
Quarter: 2023Q4

REPORT INFORMATION
  Report Type: Spontaneous
  Country: DE (occurrence: DE)
  Receive Date: 20231102
  Receipt Date: 20231102
  Transmission Date: 20240110
  Serious: Yes (Hospitalization, Other)
  Sender: FDA-Public Use
  Company Number: DE-ABBVIE-5474088

PATIENT
  Age: 76 Year
  Sex: Male

DRUGS (7)
  1. PREDNISOLONE [Suspect]
     Active Substance: PREDNISOLONE
     Indication: Polymyalgia rheumatica
     Dosage: 20 MILLIGRAM
     Route: 065
     Dates: start: 202005
  2. PREDNISOLONE [Suspect]
     Active Substance: PREDNISOLONE
     Indication: Polymyalgia rheumatica
     Route: 065
     Dates: start: 202208
  3. PREDNISOLONE [Suspect]
     Active Substance: PREDNISOLONE
     Indication: Polymyalgia rheumatica
     Dosage: 1 MG/KG BODY WEIGHT; DISCONTINUED IN 2022
     Route: 065
     Dates: start: 202201
  4. PREDNISOLONE [Suspect]
     Active Substance: PREDNISOLONE
     Indication: Polymyalgia rheumatica
     Dosage: 15 MILLIGRAM
     Route: 065
  5. PREDNISOLONE [Suspect]
     Active Substance: PREDNISOLONE
     Indication: Polymyalgia rheumatica
     Route: 065
  6. DEXAMETHASONE [Suspect]
     Active Substance: DEXAMETHASONE
     Indication: Oxygen saturation decreased
     Dosage: 0.05% ; STOP DATE: BEFORE APR 2023
     Route: 065
     Dates: start: 202301
  7. COTRIM [Concomitant]
     Active Substance: SULFAMETHOXAZOLE\TRIMETHOPRIM
     Indication: Prophylaxis

REACTIONS (35)
  - Myalgia [Unknown]
  - Vascular pain [Unknown]
  - Lung disorder [Unknown]
  - Scleritis [Unknown]
  - Polyarthritis [Unknown]
  - Transaminases increased [Unknown]
  - Giant cell arteritis [Unknown]
  - Stress [Recovering/Resolving]
  - Pyrexia [Unknown]
  - Pain in extremity [Unknown]
  - Malaise [Unknown]
  - Pyrexia [Unknown]
  - COVID-19 [Unknown]
  - Endophthalmitis [Unknown]
  - Leukopenia [Unknown]
  - Pancytopenia [Unknown]
  - Rheumatoid arthritis [Unknown]
  - Hyperchromic anaemia [Unknown]
  - Weight decreased [Unknown]
  - Ocular hyperaemia [Unknown]
  - Cough [Unknown]
  - VEXAS syndrome [Unknown]
  - Myalgia [Unknown]
  - Swelling of eyelid [Unknown]
  - Giant cell arteritis [Unknown]
  - Immobile [Unknown]
  - Restrictive pulmonary disease [Unknown]
  - Arthritis [Unknown]
  - Visual impairment [Unknown]
  - Chills [Unknown]
  - Vasculitis [Unknown]
  - Productive cough [Unknown]
  - Uveitis [Unknown]
  - Eyelid pain [Unknown]
  - Dyspnoea [Recovering/Resolving]

NARRATIVE: CASE EVENT DATE: 20200501
